FAERS Safety Report 12765057 (Version 1)
Quarter: 2016Q3

REPORT INFORMATION
  Report Type: Other
  Country: GB (occurrence: IN)
  Receive Date: 20160921
  Receipt Date: 20160921
  Transmission Date: 20161109
  Serious: Yes (Hospitalization, Other)
  Sender: FDA-Public Use
  Company Number: IN-CLARIS PHARMASERVICES-1057510

PATIENT
  Age: 40 Year
  Sex: Male

DRUGS (1)
  1. NOREPINEPHRINE BITARTRATE. [Suspect]
     Active Substance: NOREPINEPHRINE BITARTRATE
     Indication: PRODUCT USED FOR UNKNOWN INDICATION
     Route: 042

REACTIONS (6)
  - Hypertension [Recovered/Resolved]
  - Procedural complication [None]
  - Tachycardia [Recovered/Resolved]
  - Medication error [Recovered/Resolved]
  - Arterial spasm [Recovered/Resolved]
  - Wrong drug administered [None]
